FAERS Safety Report 6364083-4 (Version None)
Quarter: 2009Q3

REPORT INFORMATION
  Report Type: 
  Country: None (occurrence: None)
  Receive Date: 20090919
  Receipt Date: 20090717
  Transmission Date: 20100115
  Serious: Yes (Hospitalization)
  Sender: FDA-Public Use
  Company Number: US-ABBOTT-09P-163-0583523-00

PATIENT
  Sex: Male
  Weight: 83.99 kg

DRUGS (6)
  1. HUMIRA [Suspect]
     Indication: PSORIASIS
     Route: 058
     Dates: start: 20090301
  2. NABUMETONE [Concomitant]
     Indication: HYPERTENSION
  3. VALTREX [Concomitant]
     Indication: DRUG USE FOR UNKNOWN INDICATION
  4. HYDROCODONE [Concomitant]
     Indication: PAIN
     Route: 048
  5. SERTRALINE HCL [Concomitant]
     Indication: ANXIETY
     Route: 048
  6. CELEBREX [Concomitant]
     Indication: PAIN
     Route: 048

REACTIONS (9)
  - ARTHROPOD BITE [None]
  - CELLULITIS [None]
  - DRUG INEFFECTIVE [None]
  - ERYTHEMA [None]
  - FEELING HOT [None]
  - INFECTION [None]
  - PYREXIA [None]
  - SKIN INDURATION [None]
  - TYPE 2 DIABETES MELLITUS [None]
